FAERS Safety Report 23783380 (Version 2)
Quarter: 2024Q2

REPORT INFORMATION
  Report Type: Spontaneous
  Country: CA (occurrence: CA)
  Receive Date: 20240425
  Receipt Date: 20240502
  Transmission Date: 20240716
  Serious: Yes (Other)
  Sender: FDA-Public Use
  Company Number: CA-JNJFOC-20240464801

PATIENT
  Age: 53 Year
  Sex: Female

DRUGS (63)
  1. BUDESONIDE [Suspect]
     Active Substance: BUDESONIDE
     Indication: Product used for unknown indication
     Route: 065
  2. BUDESONIDE [Suspect]
     Active Substance: BUDESONIDE
     Route: 048
  3. REMICADE [Suspect]
     Active Substance: INFLIXIMAB
     Indication: Crohn^s disease
     Route: 065
  4. REMICADE [Suspect]
     Active Substance: INFLIXIMAB
     Route: 065
  5. ACEBUTOLOL HYDROCHLORIDE [Suspect]
     Active Substance: ACEBUTOLOL HYDROCHLORIDE
     Indication: Product used for unknown indication
     Route: 065
  6. ACEBUTOLOL HYDROCHLORIDE [Suspect]
     Active Substance: ACEBUTOLOL HYDROCHLORIDE
     Route: 065
  7. ACEBUTOLOL HYDROCHLORIDE [Suspect]
     Active Substance: ACEBUTOLOL HYDROCHLORIDE
     Route: 065
  8. ACEBUTOLOL [Suspect]
     Active Substance: ACEBUTOLOL
     Indication: Product used for unknown indication
     Route: 065
  9. ADALIMUMAB [Suspect]
     Active Substance: ADALIMUMAB\ISOPROPYL ALCOHOL
     Indication: Crohn^s disease
     Route: 058
  10. AMLODIPINE [Suspect]
     Active Substance: AMLODIPINE BESYLATE
     Indication: Product used for unknown indication
     Route: 065
  11. AMLODIPINE BESYLATE [Suspect]
     Active Substance: AMLODIPINE BESYLATE
     Indication: Product used for unknown indication
     Route: 065
  12. AMLODIPINE BESYLATE [Suspect]
     Active Substance: AMLODIPINE BESYLATE
     Route: 065
  13. AMLODIPINE BESYLATE [Suspect]
     Active Substance: AMLODIPINE BESYLATE
     Route: 065
  14. ALLANTOIN\AMINACRINE HYDROCHLORIDE\DIENESTROL\SULFANILAMIDE [Suspect]
     Active Substance: ALLANTOIN\AMINACRINE HYDROCHLORIDE\DIENESTROL\SULFANILAMIDE
     Indication: Product used for unknown indication
     Route: 065
  15. ALLANTOIN\AMINACRINE HYDROCHLORIDE\DIENESTROL\SULFANILAMIDE [Suspect]
     Active Substance: ALLANTOIN\AMINACRINE HYDROCHLORIDE\DIENESTROL\SULFANILAMIDE
     Route: 065
  16. ALLANTOIN\AMINACRINE HYDROCHLORIDE\DIENESTROL\SULFANILAMIDE [Suspect]
     Active Substance: ALLANTOIN\AMINACRINE HYDROCHLORIDE\DIENESTROL\SULFANILAMIDE
     Route: 065
  17. ALLANTOIN\AMINACRINE HYDROCHLORIDE\DIENESTROL\SULFANILAMIDE [Suspect]
     Active Substance: ALLANTOIN\AMINACRINE HYDROCHLORIDE\DIENESTROL\SULFANILAMIDE
     Route: 065
  18. ALLANTOIN\AMINACRINE HYDROCHLORIDE\DIENESTROL\SULFANILAMIDE [Suspect]
     Active Substance: ALLANTOIN\AMINACRINE HYDROCHLORIDE\DIENESTROL\SULFANILAMIDE
     Route: 065
  19. BOTULINUM TOXIN TYPE A [Suspect]
     Active Substance: BOTULINUM TOXIN TYPE A
     Indication: Migraine
     Route: 058
  20. BOTULINUM TOXIN TYPE A [Suspect]
     Active Substance: BOTULINUM TOXIN TYPE A
     Route: 058
  21. BOTULINUM TOXIN TYPE A [Suspect]
     Active Substance: BOTULINUM TOXIN TYPE A
     Route: 058
  22. BUPROPION [Suspect]
     Active Substance: BUPROPION
     Indication: Product used for unknown indication
     Route: 065
  23. BUPROPION [Suspect]
     Active Substance: BUPROPION
     Route: 065
  24. BUPROPION [Suspect]
     Active Substance: BUPROPION
     Route: 065
  25. DEXILANT [Suspect]
     Active Substance: DEXLANSOPRAZOLE
     Indication: Product used for unknown indication
     Route: 065
  26. DEXILANT [Suspect]
     Active Substance: DEXLANSOPRAZOLE
     Route: 065
  27. DEXILANT [Suspect]
     Active Substance: DEXLANSOPRAZOLE
     Route: 065
  28. DEXLANSOPRAZOLE [Suspect]
     Active Substance: DEXLANSOPRAZOLE
     Indication: Product used for unknown indication
     Route: 065
  29. DIENESTROL [Suspect]
     Active Substance: DIENESTROL
     Indication: Product used for unknown indication
     Route: 065
  30. ENTOCORT [Suspect]
     Active Substance: BUDESONIDE
     Indication: Product used for unknown indication
     Route: 048
  31. ERGOCALCIFEROL [Suspect]
     Active Substance: ERGOCALCIFEROL
     Indication: Product used for unknown indication
     Route: 065
  32. ERGOCALCIFEROL [Suspect]
     Active Substance: ERGOCALCIFEROL
     Route: 065
  33. ERGOCALCIFEROL [Suspect]
     Active Substance: ERGOCALCIFEROL
     Route: 065
  34. HUMIRA [Suspect]
     Active Substance: ADALIMUMAB
     Indication: Crohn^s disease
     Route: 058
  35. HUMIRA [Suspect]
     Active Substance: ADALIMUMAB
     Route: 058
  36. MESALAMINE [Suspect]
     Active Substance: MESALAMINE
     Indication: Product used for unknown indication
     Route: 065
  37. METHOTREXATE [Suspect]
     Active Substance: METHOTREXATE
     Indication: Product used for unknown indication
     Route: 065
  38. MESALAMINE [Suspect]
     Active Substance: MESALAMINE
     Indication: Product used for unknown indication
     Route: 065
  39. MESALAMINE [Suspect]
     Active Substance: MESALAMINE
     Route: 065
  40. MESALAMINE [Suspect]
     Active Substance: MESALAMINE
     Route: 065
  41. PARA-AMINOSALICYLIC ACID [Suspect]
     Active Substance: AMINOSALICYLIC ACID
     Indication: Product used for unknown indication
     Route: 065
  42. PENTASA [Suspect]
     Active Substance: MESALAMINE
     Indication: Product used for unknown indication
     Route: 065
  43. PREDNISONE [Suspect]
     Active Substance: PREDNISONE
     Indication: Product used for unknown indication
     Route: 048
  44. PREDNISONE [Suspect]
     Active Substance: PREDNISONE
     Route: 065
  45. ROSUVASTATIN CALCIUM [Suspect]
     Active Substance: ROSUVASTATIN CALCIUM
     Indication: Product used for unknown indication
     Route: 048
  46. ROSUVASTATIN CALCIUM [Suspect]
     Active Substance: ROSUVASTATIN CALCIUM
     Route: 065
  47. ROSUVASTATIN CALCIUM [Suspect]
     Active Substance: ROSUVASTATIN CALCIUM
     Route: 065
  48. ROSUVASTATIN CALCIUM [Suspect]
     Active Substance: ROSUVASTATIN CALCIUM
     Route: 048
  49. ALBUTEROL [Suspect]
     Active Substance: ALBUTEROL
     Indication: Product used for unknown indication
     Route: 065
  50. SUMATRIPTAN [Suspect]
     Active Substance: SUMATRIPTAN
     Indication: Product used for unknown indication
     Route: 065
  51. SUMATRIPTAN SUCCINATE [Suspect]
     Active Substance: SUMATRIPTAN SUCCINATE
     Indication: Product used for unknown indication
     Route: 065
  52. SUMATRIPTAN SUCCINATE [Suspect]
     Active Substance: SUMATRIPTAN SUCCINATE
     Route: 065
  53. SUMATRIPTAN SUCCINATE [Suspect]
     Active Substance: SUMATRIPTAN SUCCINATE
     Route: 065
  54. TELMISARTAN [Suspect]
     Active Substance: TELMISARTAN
     Indication: Product used for unknown indication
     Route: 065
  55. TELMISARTAN [Suspect]
     Active Substance: TELMISARTAN
     Route: 048
  56. TELMISARTAN [Suspect]
     Active Substance: TELMISARTAN
     Route: 065
  57. TELMISARTAN [Suspect]
     Active Substance: TELMISARTAN
     Route: 048
  58. VENLAFAXINE [Suspect]
     Active Substance: VENLAFAXINE HYDROCHLORIDE
     Indication: Product used for unknown indication
     Route: 065
  59. VENLAFAXINE [Suspect]
     Active Substance: VENLAFAXINE HYDROCHLORIDE
     Route: 065
  60. VENLAFAXINE [Suspect]
     Active Substance: VENLAFAXINE HYDROCHLORIDE
     Route: 065
  61. FENTANYL [Suspect]
     Active Substance: FENTANYL\FENTANYL CITRATE
     Indication: Product used for unknown indication
     Route: 065
  62. FENTANYL [Suspect]
     Active Substance: FENTANYL\FENTANYL CITRATE
     Route: 065
  63. FENTANYL [Suspect]
     Active Substance: FENTANYL\FENTANYL CITRATE
     Route: 065

REACTIONS (12)
  - Arthritis [Unknown]
  - Asthma [Unknown]
  - Chronic kidney disease [Unknown]
  - Depression [Unknown]
  - Drug intolerance [Unknown]
  - Drug specific antibody present [Unknown]
  - Endometriosis [Unknown]
  - Hypertension [Unknown]
  - Migraine [Unknown]
  - Psoriasis [Unknown]
  - Incorrect route of product administration [Unknown]
  - Drug ineffective [Unknown]
